FAERS Safety Report 7439191-7 (Version None)
Quarter: 2011Q2

REPORT INFORMATION
  Report Type: 
  Country: None (occurrence: None)
  Receive Date: 20110427
  Receipt Date: 20110419
  Transmission Date: 20111010
  Serious: Yes (Other)
  Sender: FDA-Public Use
  Company Number: BR-JNJFOC-20110410084

PATIENT
  Sex: Male

DRUGS (5)
  1. TYLEX [Suspect]
     Indication: PRODUCT USED FOR UNKNOWN INDICATION
     Dosage: 1 TABLET EACH 12 HOURS
     Route: 048
  2. DIAMICRON [Concomitant]
     Indication: DIABETES MELLITUS
     Route: 065
  3. JANUMET [Concomitant]
     Indication: DIABETES MELLITUS
     Route: 065
  4. REPAGLINIDE [Concomitant]
     Indication: DIABETES MELLITUS
     Route: 065
  5. ACTOS [Concomitant]
     Indication: DIABETES MELLITUS
     Route: 065

REACTIONS (2)
  - BLOOD GLUCOSE INCREASED [None]
  - DIZZINESS [None]
